FAERS Safety Report 7568519-2 (Version None)
Quarter: 2011Q2

REPORT INFORMATION
  Report Type: 
  Country: None (occurrence: None)
  Receive Date: 20110617
  Receipt Date: 20110607
  Transmission Date: 20111010
  Serious: Yes (Hospitalization, Other)
  Sender: FDA-Public Use
  Company Number: 1000019259

PATIENT
  Sex: Female

DRUGS (3)
  1. LEXAPRO [Suspect]
     Indication: DEPRESSION
     Dosage: 10 MG (10 MG,1 IN 1 D)
     Dates: start: 20110225, end: 20110301
  2. AMANTADINE (AMANTADINE) (AMANTADINE) [Concomitant]
  3. OMEPRAZOLE [Suspect]

REACTIONS (6)
  - DRUG INTERACTION [None]
  - CONDITION AGGRAVATED [None]
  - TREMOR [None]
  - DYSPHAGIA [None]
  - SEROTONIN SYNDROME [None]
  - NEUROLEPTIC MALIGNANT SYNDROME [None]
